FAERS Safety Report 21273182 (Version 2)
Quarter: 2022Q3

REPORT INFORMATION
  Report Type: Report from Study
  Country: DE (occurrence: None)
  Receive Date: 20220831
  Receipt Date: 20220907
  Transmission Date: 20221027
  Serious: Yes (Hospitalization)
  Sender: FDA-Public Use
  Company Number: DE-ROCHE-3160746

PATIENT
  Age: 71 Year
  Sex: Female
  Weight: 65 kg

DRUGS (4)
  1. ATEZOLIZUMAB [Suspect]
     Active Substance: ATEZOLIZUMAB
     Indication: Neuroendocrine tumour of the lung
     Dosage: DATE OF LAST ADMIN BEFORE ONSET DATE OF SAE 05AUG/2022
     Route: 041
     Dates: start: 20220805
  2. ETOPOSIDE [Suspect]
     Active Substance: ETOPOSIDE
     Indication: Neuroendocrine tumour of the lung
     Dosage: DATE OF LAST ADMIN BEFORE ONSET DATE OF SAE 07AUG/2022
     Route: 065
     Dates: start: 20220805
  3. CISPLATIN [Suspect]
     Active Substance: CISPLATIN
     Indication: Neuroendocrine tumour of the lung
     Dosage: DATE OF LAST ADMIN BEFORE ONSET DATE OF SAE 05AUG/2022
     Route: 065
     Dates: start: 20220805
  4. CARBOPLATIN [Suspect]
     Active Substance: CARBOPLATIN
     Indication: Neuroendocrine tumour of the lung
     Dosage: DATE OF LAST ADMIN BEFORE ONSET DATE OF SAE 05AUG/2022?DOSE -  AUC
     Route: 065
     Dates: start: 20220805

REACTIONS (1)
  - General physical health deterioration [Recovered/Resolved]

NARRATIVE: CASE EVENT DATE: 20220807
